FAERS Safety Report 8173647-7 (Version None)
Quarter: 2012Q1

REPORT INFORMATION
  Report Type: 
  Country: None (occurrence: None)
  Receive Date: 20120229
  Receipt Date: 20120220
  Transmission Date: 20120608
  Serious: Yes (Hospitalization)
  Sender: FDA-Public Use
  Company Number: US-BAYER-2011-047511

PATIENT
  Age: 41 Year
  Sex: Female
  Weight: 173.24 kg

DRUGS (27)
  1. DROSPIRENONE AND ETHINYL ESTRADIOL [Suspect]
     Indication: PREMENSTRUAL SYNDROME
  2. ACETAMINOPHEN AND HYDROCODONE BITARTRATE [Concomitant]
     Dosage: UNK
     Dates: start: 20081211, end: 20101229
  3. BYETTA [Concomitant]
  4. VANCOMYCIN [Concomitant]
  5. JANUMET [Concomitant]
     Indication: DIABETES MELLITUS
     Dosage: UNK
     Dates: start: 20070627, end: 20080828
  6. LASIX [Concomitant]
  7. SULFAMETHOXAZOLE + TRIMETHOPRIM [Concomitant]
     Dosage: UNK
     Dates: start: 20080424, end: 20110501
  8. YASMIN [Suspect]
     Indication: PREMENSTRUAL SYNDROME
  9. DROSPIRENONE AND ETHINYL ESTRADIOL [Suspect]
     Indication: CONTRACEPTION
     Dosage: UNK
     Dates: start: 20040830, end: 20090305
  10. METOPROLOL SUCCINATE [Concomitant]
  11. ZETIA [Concomitant]
     Dosage: 10 MG, UNK
     Dates: start: 20090210
  12. CRESTOR [Concomitant]
  13. TOPROL-XL [Concomitant]
  14. VICODIN [Concomitant]
  15. CIPROFLOXACIN [Concomitant]
     Dosage: 500 MG, UNK
     Dates: start: 20080314, end: 20101229
  16. LANTUS [Concomitant]
     Dosage: UNK
     Dates: start: 20090206, end: 20091011
  17. NORVASC [Concomitant]
  18. LOPRESSOR [Concomitant]
  19. ASPIRIN [Concomitant]
  20. NAPROXEN [Concomitant]
     Dosage: 500 MG, UNK
     Dates: start: 20070701, end: 20090116
  21. PRAVASTATIN [Concomitant]
     Dosage: 40 MG, UNK
     Dates: start: 20080707, end: 20110303
  22. METOPROLOL SUCCINATE [Concomitant]
     Indication: HEART RATE ABNORMAL
     Dosage: UNK
     Dates: start: 20080707, end: 20110302
  23. ENALAPRIL MALEATE [Concomitant]
     Indication: BLOOD PRESSURE INCREASED
     Dosage: UNK
     Dates: start: 20010525, end: 20110302
  24. GLIPIZIDE [Concomitant]
     Indication: DIABETES MELLITUS
     Dosage: UNK
     Dates: start: 20040807, end: 20110302
  25. YASMIN [Suspect]
     Indication: CONTRACEPTION
     Dosage: UNK
     Dates: start: 20040830, end: 20090305
  26. FUROSEMIDE [Concomitant]
     Indication: BLOOD PRESSURE INCREASED
     Dosage: UNK
     Dates: start: 20010417, end: 20101216
  27. AMOXICILLIN [Concomitant]
     Dosage: 875 MG, UNK
     Dates: start: 20061227, end: 20110310

REACTIONS (4)
  - MYOCARDIAL INFARCTION [None]
  - INJURY [None]
  - PAIN [None]
  - EMOTIONAL DISTRESS [None]
